FAERS Safety Report 4351304-2 (Version None)
Quarter: 2004Q2

REPORT INFORMATION
  Report Type: 
  Country: None (occurrence: None)
  Receive Date: 20040428
  Receipt Date: 20040419
  Transmission Date: 20050107
  Serious: Yes (Other)
  Sender: FDA-Public Use
  Company Number: US-JNJFOC-20040305809

PATIENT
  Age: 83 Year
  Sex: Female

DRUGS (3)
  1. DURAGESIC [Suspect]
     Indication: PAIN
     Dosage: 25 UG/HR, 1 IN 72 HOUR TRANSDERMAL; 50 UG/HR, 1 IN 72 HOUR, TRANSDERMAL; 75 UG/HR, 1 IN 72 HOUR, TRA
     Route: 062
     Dates: start: 20040222, end: 20040228
  2. DURAGESIC [Suspect]
     Indication: PAIN
     Dosage: 25 UG/HR, 1 IN 72 HOUR TRANSDERMAL; 50 UG/HR, 1 IN 72 HOUR, TRANSDERMAL; 75 UG/HR, 1 IN 72 HOUR, TRA
     Route: 062
     Dates: start: 20040228, end: 20040307
  3. DURAGESIC [Suspect]
     Indication: PAIN
     Dosage: 25 UG/HR, 1 IN 72 HOUR TRANSDERMAL; 50 UG/HR, 1 IN 72 HOUR, TRANSDERMAL; 75 UG/HR, 1 IN 72 HOUR, TRA
     Route: 062
     Dates: start: 20040307

REACTIONS (7)
  - COMA [None]
  - CONFUSIONAL STATE [None]
  - DRUG EFFECT DECREASED [None]
  - MEDICATION ERROR [None]
  - NAUSEA [None]
  - OVERDOSE [None]
  - PAIN [None]
